FAERS Safety Report 6720581-2 (Version None)
Quarter: 2010Q2

REPORT INFORMATION
  Report Type: 
  Country: None (occurrence: None)
  Receive Date: 20100510
  Receipt Date: 20100429
  Transmission Date: 20101027
  Serious: Yes (Other)
  Sender: FDA-Public Use
  Company Number: 10-000245

PATIENT
  Age: 60 Year
  Sex: Female
  Weight: 59 kg

DRUGS (6)
  1. FEMRING [Suspect]
     Indication: HORMONE REPLACEMENT THERAPY
     Dosage: 0.1 MG, QD, VAGINAL
     Route: 067
     Dates: start: 20100115, end: 20100426
  2. ESTRACE [Suspect]
     Indication: HORMONE REPLACEMENT THERAPY
     Dosage: DAILY, VAGINAL
     Route: 067
     Dates: start: 20080101
  3. ACTIVELLA [Suspect]
     Dates: start: 20091101
  4. VITAMINS [Concomitant]
  5. CALCIUM (CALCIUM GLUBIONATE) [Concomitant]
  6. MUCINEX [Concomitant]

REACTIONS (6)
  - DEVICE EXPULSION [None]
  - DRUG INEFFECTIVE FOR UNAPPROVED INDICATION [None]
  - MUSCLE SPASMS [None]
  - PRODUCT ADHESION ISSUE [None]
  - VAGINAL STRICTURE [None]
  - VULVOVAGINAL ADHESION [None]
